FAERS Safety Report 4521666-1 (Version None)
Quarter: 2004Q4

REPORT INFORMATION
  Report Type: 
  Country: None (occurrence: None)
  Receive Date: 20041206
  Receipt Date: 20041122
  Transmission Date: 20050328
  Serious: Yes (Hospitalization)
  Sender: FDA-Public Use
  Company Number: 2004CG02348

PATIENT
  Age: 82 Year
  Sex: Male
  Weight: 96 kg

DRUGS (5)
  1. MOPRAL [Suspect]
  2. PREVISCAN [Suspect]
     Dosage: 15 MG DAILY PO
     Route: 048
  3. LASIX [Concomitant]
  4. APROVEL [Concomitant]
  5. CORDIPATCH [Concomitant]

REACTIONS (4)
  - DRUG INTERACTION [None]
  - HAEMATEMESIS [None]
  - OESOPHAGEAL ULCER [None]
  - PROTHROMBIN TIME PROLONGED [None]
